FAERS Safety Report 4446288-2 (Version None)
Quarter: 2004Q3

REPORT INFORMATION
  Report Type: 
  Country: None (occurrence: None)
  Receive Date: 20040907
  Receipt Date: 20040809
  Transmission Date: 20050211
  Serious: Yes (Life-Threatening, Hospitalization)
  Sender: FDA-Public Use
  Company Number: 238283

PATIENT
  Age: 82 Year
  Sex: Female

DRUGS (9)
  1. NOVOLOG [Suspect]
     Indication: DIABETES MELLITUS
     Dosage: SUBCUTANEOUS
     Route: 058
  2. ASPIRIN [Concomitant]
  3. MULTIVITAMIN [Concomitant]
  4. GLYBURIDE [Concomitant]
  5. TOPROL-XL [Concomitant]
  6. ESTERASE [Concomitant]
  7. NOVOLOG MIX 70/30 [Concomitant]
  8. HYDROCHLOROTHIAZIDE [Concomitant]
  9. DOXAZOSIN (DOXAZOSIN) [Concomitant]

REACTIONS (6)
  - DIARRHOEA [None]
  - DISORIENTATION [None]
  - FEELING ABNORMAL [None]
  - HYPOGLYCAEMIC COMA [None]
  - MEDICATION ERROR [None]
  - VISION BLURRED [None]
